FAERS Safety Report 4632897-4 (Version None)
Quarter: 2005Q2

REPORT INFORMATION
  Report Type: 
  Country: None (occurrence: None)
  Receive Date: 20050325
  Receipt Date: 20050131
  Transmission Date: 20051028
  Serious: No
  Sender: FDA-Public Use
  Company Number: USA031152697

PATIENT
  Age: 83 Year
  Sex: Female
  Weight: 62 kg

DRUGS (7)
  1. FORTEO [Suspect]
     Indication: OSTEOPOROSIS
     Dosage: 20 UG/DAY
     Dates: start: 20031114
  2. PREDNISONE [Concomitant]
  3. PULMICORT [Concomitant]
  4. LASIX [Concomitant]
  5. DIGOXIN [Concomitant]
  6. DIOVAN [Concomitant]
  7. KLOR-CON [Concomitant]

REACTIONS (13)
  - DIFFICULTY IN WALKING [None]
  - DIZZINESS [None]
  - FEELING ABNORMAL [None]
  - MALAISE [None]
  - MUSCLE SPASMS [None]
  - MUSCULOSKELETAL STIFFNESS [None]
  - NAUSEA [None]
  - NEUROPATHY [None]
  - PAIN IN EXTREMITY [None]
  - PULMONARY CONGESTION [None]
  - SENSATION OF HEAVINESS [None]
  - SWELLING [None]
  - VISION BLURRED [None]
